FAERS Safety Report 13720790 (Version 5)
Quarter: 2018Q3

REPORT INFORMATION
  Report Type: Report from Study
  Country: JP (occurrence: JP)
  Receive Date: 20170706
  Receipt Date: 20180918
  Transmission Date: 20181010
  Serious: Yes (Hospitalization)
  Sender: FDA-Public Use
  Company Number: JP-TAKEDA-2017TJP013552

PATIENT
  Age: 79 Year
  Sex: Male
  Weight: 48 kg

DRUGS (11)
  1. LENADEX [Suspect]
     Active Substance: DEXAMETHASONE ACETATE
     Indication: PLASMA CELL MYELOMA
     Dosage: 20 MG, UNK
     Route: 048
     Dates: start: 20170330
  2. FEBURIC [Concomitant]
     Active Substance: FEBUXOSTAT
     Indication: HYPERURICAEMIA
     Dosage: 10 MG, QD
     Route: 048
     Dates: start: 20170331
  3. IXAZOMIB [Suspect]
     Active Substance: IXAZOMIB
     Indication: PLASMA CELL MYELOMA
     Dosage: 4 MG, 1/WEEK
     Route: 048
     Dates: start: 20170615, end: 20170622
  4. REVLIMID [Suspect]
     Active Substance: LENALIDOMIDE
     Dosage: 10 MG, QD
     Route: 048
  5. FUROSEMIDE. [Concomitant]
     Active Substance: FUROSEMIDE
     Indication: HYPERTENSION
     Dosage: 20 MG, QD
     Route: 048
     Dates: start: 20170708
  6. LEVOFLOXACIN HEMIHYDRATE [Concomitant]
     Active Substance: LEVOFLOXACIN
     Indication: URINARY TRACT INFECTION
     Dosage: 500 MG, QD
     Route: 048
     Dates: start: 20170703, end: 20170709
  7. REVLIMID [Suspect]
     Active Substance: LENALIDOMIDE
     Dosage: 15 MG, QD
     Route: 048
     Dates: start: 20170615
  8. LENADEX [Suspect]
     Active Substance: DEXAMETHASONE ACETATE
     Dosage: 20 MG, 1/WEEK
     Route: 048
     Dates: start: 20170615
  9. LENADEX [Suspect]
     Active Substance: DEXAMETHASONE ACETATE
     Dosage: 20 MG, UNK
     Route: 048
  10. IXAZOMIB [Suspect]
     Active Substance: IXAZOMIB
     Dosage: 4 MG, Q2WEEKS
     Route: 048
     Dates: start: 20170713
  11. REVLIMID [Suspect]
     Active Substance: LENALIDOMIDE
     Indication: PLASMA CELL MYELOMA
     Dosage: 10 MG, QD
     Route: 048
     Dates: start: 20170330

REACTIONS (7)
  - Melaena [Recovering/Resolving]
  - Urinary tract infection [Recovering/Resolving]
  - Decreased appetite [Recovering/Resolving]
  - Thrombocytopenia [Recovering/Resolving]
  - Diarrhoea [Recovering/Resolving]
  - Dehydration [Recovering/Resolving]
  - Malnutrition [Recovering/Resolving]

NARRATIVE: CASE EVENT DATE: 20170623
